FAERS Safety Report 9374402 (Version 2)
Quarter: 2013Q3

REPORT INFORMATION
  Report Type: Spontaneous
  Country: US (occurrence: US)
  Receive Date: 20130628
  Receipt Date: 20130715
  Transmission Date: 20140515
  Serious: No
  Sender: FDA-Public Use
  Company Number: US-PFIZER INC-2013189350

PATIENT
  Age: 52 Year
  Sex: Female

DRUGS (2)
  1. ESTRING [Suspect]
     Indication: ATROPHIC VULVOVAGINITIS
     Dosage: UNK
     Route: 067
     Dates: start: 201212
  2. ESTRING [Suspect]
     Indication: VULVOVAGINAL DRYNESS
     Dosage: UNK
     Route: 067
     Dates: start: 20130315, end: 20130614

REACTIONS (4)
  - Product quality issue [Unknown]
  - Uterine cervical erosion [Recovered/Resolved]
  - Cervical friability [Recovered/Resolved]
  - Uterine cervical laceration [Recovered/Resolved]
